FAERS Safety Report 4960263-0 (Version None)
Quarter: 2006Q2

REPORT INFORMATION
  Report Type: 
  Country: None (occurrence: None)
  Receive Date: 20060403
  Receipt Date: 20051206
  Transmission Date: 20061013
  Serious: Yes (Disabling, Other)
  Sender: FDA-Public Use
  Company Number: PHRM2005FR03219

PATIENT
  Age: 72 Year
  Sex: Female
  Weight: 70 kg

DRUGS (9)
  1. SOPROL [Concomitant]
     Indication: HYPERTENSION
  2. APROVEL [Concomitant]
     Indication: HYPERTENSION
  3. LIPANTHYL ^FOURNIER^ [Concomitant]
     Indication: DYSLIPIDAEMIA
  4. SERMION [Concomitant]
  5. MYOLASTAN [Concomitant]
     Indication: SCOLIOSIS
  6. NITROFURANTOIN [Suspect]
     Indication: URINARY TRACT INFECTION
     Dates: start: 20040101, end: 20060201
  7. HYPERIUM [Concomitant]
     Indication: HYPERTENSION
  8. ACETAMINOPHEN [Concomitant]
     Indication: SCOLIOSIS
  9. LAMISIL [Suspect]
     Indication: NAIL TINEA
     Dosage: 250 MG, QD
     Route: 048
     Dates: start: 20051015

REACTIONS (2)
  - ASBESTOSIS [None]
  - INTERSTITIAL LUNG DISEASE [None]
